FAERS Safety Report 19205476 (Version 1)
Quarter: 2021Q2

REPORT INFORMATION
  Report Type: Spontaneous
  Country: US (occurrence: US)
  Receive Date: 20210503
  Receipt Date: 20210503
  Transmission Date: 20210717
  Serious: No
  Sender: FDA-Public Use
  Company Number: US-GALDERMA-US2021007828

PATIENT
  Age: 45 Year
  Sex: Female

DRUGS (1)
  1. DIFFERIN GEL [Suspect]
     Active Substance: ADAPALENE
     Indication: ACNE
     Dosage: 0.1 %
     Route: 061
     Dates: start: 2019

REACTIONS (4)
  - Pupils unequal [Not Recovered/Not Resolved]
  - Accidental exposure to product [Recovered/Resolved]
  - Conjunctivitis [Recovered/Resolved]
  - Lacrimation increased [Recovered/Resolved]

NARRATIVE: CASE EVENT DATE: 20210319
